FAERS Safety Report 23866784 (Version 1)
Quarter: 2024Q2

REPORT INFORMATION
  Report Type: Spontaneous
  Country: CN (occurrence: CN)
  Receive Date: 20240517
  Receipt Date: 20240517
  Transmission Date: 20240716
  Serious: Yes (Hospitalization)
  Sender: FDA-Public Use
  Company Number: CN-STRIDES ARCOLAB LIMITED-2024SP005730

PATIENT
  Age: 4 Month

DRUGS (31)
  1. FUROSEMIDE [Interacting]
     Active Substance: FUROSEMIDE
     Indication: Heart disease congenital
     Dosage: 4 MILLIGRAM, BID (TABLET)
     Route: 048
     Dates: start: 201909, end: 20190929
  2. FUROSEMIDE [Interacting]
     Active Substance: FUROSEMIDE
     Indication: Ventricular septal defect
     Dosage: 5 MILLIGRAM, TID (INJECTION)
     Route: 042
     Dates: start: 20190929
  3. FUROSEMIDE [Interacting]
     Active Substance: FUROSEMIDE
     Indication: Atrial septal defect
  4. FUROSEMIDE [Interacting]
     Active Substance: FUROSEMIDE
     Indication: Pulmonary arterial hypertension
  5. DIGOXIN [Interacting]
     Active Substance: DIGOXIN
     Indication: Heart disease congenital
     Dosage: 0.9 MILLILITER, EVERY 12 HRS
     Route: 048
     Dates: start: 20191002
  6. DIGOXIN [Interacting]
     Active Substance: DIGOXIN
     Indication: Ventricular septal defect
  7. DIGOXIN [Interacting]
     Active Substance: DIGOXIN
     Indication: Atrial septal defect
  8. DIGOXIN [Interacting]
     Active Substance: DIGOXIN
     Indication: Pulmonary arterial hypertension
  9. DIGOXIN [Interacting]
     Active Substance: DIGOXIN
     Indication: Acute respiratory failure
  10. DIGOXIN [Interacting]
     Active Substance: DIGOXIN
     Indication: Cardiomyopathy
  11. SPIRONOLACTONE [Interacting]
     Active Substance: SPIRONOLACTONE
     Indication: Heart disease congenital
     Dosage: 4 MILLIGRAM, BID
     Route: 048
     Dates: start: 201909, end: 20190929
  12. SPIRONOLACTONE [Interacting]
     Active Substance: SPIRONOLACTONE
     Indication: Ventricular septal defect
     Dosage: 2 MILLIGRAM, EVERY 8 HRS
     Route: 048
     Dates: start: 20191003
  13. SPIRONOLACTONE [Interacting]
     Active Substance: SPIRONOLACTONE
     Indication: Atrial septal defect
  14. SPIRONOLACTONE [Interacting]
     Active Substance: SPIRONOLACTONE
     Indication: Pulmonary arterial hypertension
  15. HYDROCHLOROTHIAZIDE [Interacting]
     Active Substance: HYDROCHLOROTHIAZIDE
     Indication: Heart disease congenital
     Dosage: 2.5 MILLIGRAM, EVERY 12 HRS
     Route: 048
     Dates: start: 20191003
  16. HYDROCHLOROTHIAZIDE [Interacting]
     Active Substance: HYDROCHLOROTHIAZIDE
     Indication: Pulmonary arterial hypertension
  17. CAPTOPRIL [Interacting]
     Active Substance: CAPTOPRIL
     Indication: Heart disease congenital
     Dosage: 12.5 MILLIGRAM, EVERY 12 HRS
     Route: 048
     Dates: start: 201909
  18. CAPTOPRIL [Interacting]
     Active Substance: CAPTOPRIL
     Indication: Pulmonary arterial hypertension
  19. CEFOPERAZONE SODIUM [Concomitant]
     Active Substance: CEFOPERAZONE SODIUM
     Indication: Pneumonia
     Dosage: 0.22 GRAM, EVERY 8 HOURS (DRIP)
     Route: 041
     Dates: start: 201909, end: 20191008
  20. SULBACTAM SODIUM [Concomitant]
     Active Substance: SULBACTAM SODIUM
     Indication: Pneumonia
     Dosage: 0.22 GRAM, EVERY 8 HOURS (DRIP)
     Route: 041
     Dates: start: 201909, end: 20191008
  21. BUDESONIDE [Concomitant]
     Active Substance: BUDESONIDE
     Indication: Acute respiratory failure
     Dosage: 1 MILLIGRAM, EVERY 4 HRS (VIA AEROSOL INHALATION)
     Dates: start: 201909, end: 20190929
  22. CREATINE [Concomitant]
     Active Substance: CREATINE
     Indication: Heart disease congenital
     Dosage: 0.5 GRAM, QD
     Route: 042
     Dates: start: 201909, end: 2019
  23. CREATINE [Concomitant]
     Active Substance: CREATINE
     Indication: Ventricular septal defect
  24. CREATINE [Concomitant]
     Active Substance: CREATINE
     Indication: Atrial septal defect
  25. CREATINE [Concomitant]
     Active Substance: CREATINE
     Indication: Pulmonary arterial hypertension
  26. MILRINONE [Concomitant]
     Active Substance: MILRINONE
     Indication: Heart disease congenital
     Dosage: 2 MILLIGRAM, QD (DRIP)
     Route: 041
     Dates: start: 201909, end: 20190929
  27. MILRINONE [Concomitant]
     Active Substance: MILRINONE
     Indication: Pulmonary arterial hypertension
  28. MILRINONE [Concomitant]
     Active Substance: MILRINONE
     Indication: Ventricular septal defect
  29. MILRINONE [Concomitant]
     Active Substance: MILRINONE
     Indication: Atrial septal defect
  30. AMBROXOL HYDROCHLORIDE [Concomitant]
     Active Substance: AMBROXOL HYDROCHLORIDE
     Indication: Pneumonia
     Dosage: UNK
     Route: 065
     Dates: start: 20190929
  31. ALBUTEROL SULFATE [Concomitant]
     Active Substance: ALBUTEROL SULFATE
     Indication: Pneumonia
     Dosage: 1.25 MILLIGRAM, EVERY 6 HRS (SALBUTAMOL SULPHATE NEBULES INHALATION SOLUTION; THRICE DAILY)
     Dates: start: 20191002

REACTIONS (2)
  - Drug interaction [Unknown]
  - Off label use [Unknown]

NARRATIVE: CASE EVENT DATE: 20191001
